FAERS Safety Report 4909781-1 (Version None)
Quarter: 2006Q1

REPORT INFORMATION
  Report Type: 
  Country: None (occurrence: None)
  Receive Date: 20060208
  Receipt Date: 20060127
  Transmission Date: 20060701
  Serious: Yes (Hospitalization, Other)
  Sender: FDA-Public Use
  Company Number: 2005057290

PATIENT
  Sex: Female
  Weight: 95.2554 kg

DRUGS (15)
  1. BEXTRA [Suspect]
     Indication: RHEUMATOID ARTHRITIS
     Dosage: (1 IN 1 D), ORAL
     Route: 048
     Dates: end: 20020101
  2. PREVACID [Concomitant]
  3. SINGULAIR ^MERCK^ (MONTELUKAST SODIUM) [Concomitant]
  4. ARAVA [Concomitant]
  5. KINERET [Concomitant]
  6. HUMALOG [Concomitant]
  7. INSULIN [Concomitant]
  8. TRICOR [Concomitant]
  9. METHOTREXATE [Concomitant]
  10. VICODIN [Concomitant]
  11. ACIPHEX [Concomitant]
  12. CATAFLAM [Concomitant]
  13. VALIUM [Concomitant]
  14. AMBIEN [Concomitant]
  15. VIOXX [Concomitant]

REACTIONS (12)
  - ABDOMINAL HERNIA [None]
  - ABDOMINAL PAIN UPPER [None]
  - BACK PAIN [None]
  - DIABETES MELLITUS [None]
  - DYSPEPSIA [None]
  - FAT NECROSIS [None]
  - HERNIA REPAIR [None]
  - IMPAIRED HEALING [None]
  - NECK PAIN [None]
  - OPEN WOUND [None]
  - POST PROCEDURAL COMPLICATION [None]
  - POSTOPERATIVE WOUND INFECTION [None]
